FAERS Safety Report 15821450 (Version 1)
Quarter: 2019Q1

REPORT INFORMATION
  Report Type: Spontaneous
  Country: IN (occurrence: IN)
  Receive Date: 20190114
  Receipt Date: 20190114
  Transmission Date: 20190417
  Serious: Yes (Hospitalization)
  Sender: FDA-Public Use
  Company Number: IN-MYLANLABS-2019M1001256

PATIENT
  Age: 32 Year
  Sex: Female

DRUGS (1)
  1. IMATINIB. [Suspect]
     Active Substance: IMATINIB MESYLATE
     Indication: CHRONIC MYELOID LEUKAEMIA
     Dosage: CUMULATIVE DAILY DOSE OF 400 MG/DAY IMATINIB FROM PAST SIX YEARS
     Route: 065

REACTIONS (2)
  - Serous retinal detachment [Recovered/Resolved]
  - Eye inflammation [Recovered/Resolved]
